FAERS Safety Report 9325112 (Version 1)
Quarter: 2013Q2

REPORT INFORMATION
  Report Type: Spontaneous
  Country: US (occurrence: None)
  Receive Date: 20130529
  Receipt Date: 20130529
  Transmission Date: 20140414
  Serious: Yes (Hospitalization)
  Sender: FDA-Public Use
  Company Number: 2013P1006274

PATIENT
  Age: 79 Year
  Sex: Female

DRUGS (2)
  1. INFUMORPH [Suspect]
  2. MARCAINE [Suspect]

REACTIONS (3)
  - Drug withdrawal syndrome [None]
  - Underdose [None]
  - Pain [None]
